FAERS Safety Report 17921908 (Version 1)
Quarter: 2020Q2

REPORT INFORMATION
  Report Type: Spontaneous
  Country: US (occurrence: US)
  Receive Date: 20200619
  Receipt Date: 20200619
  Transmission Date: 20200714
  Serious: Yes (Death)
  Sender: FDA-Public Use
  Company Number: None

PATIENT
  Age: 54 Year
  Sex: Male

DRUGS (16)
  1. SUCRALFATE. [Concomitant]
     Active Substance: SUCRALFATE
  2. VANCOMYCIN [Concomitant]
     Active Substance: VANCOMYCIN
  3. LIDOCAINE. [Concomitant]
     Active Substance: LIDOCAINE
  4. AMOX/K CLAV [Concomitant]
     Active Substance: AMOXICILLIN\CLAVULANATE POTASSIUM
  5. GRANIX [Concomitant]
     Active Substance: TBO-FILGRASTIM
  6. SPIRONOLACTONE. [Concomitant]
     Active Substance: SPIRONOLACTONE
  7. BUMETADINE [Concomitant]
     Active Substance: BUMETANIDE
  8. TOUJEO [Concomitant]
     Active Substance: INSULIN GLARGINE
  9. FUROSEMIDE. [Concomitant]
     Active Substance: FUROSEMIDE
  10. HYDROXYZ HCL [Concomitant]
     Active Substance: HYDROXYZINE HYDROCHLORIDE
  11. CHLORHEX GLU [Concomitant]
  12. PANTOPRAZOLE [Concomitant]
     Active Substance: PANTOPRAZOLE
  13. HYDROMORPHONE [Concomitant]
     Active Substance: HYDROMORPHONE
  14. OSELTAMIVIR [Concomitant]
     Active Substance: OSELTAMIVIR
  15. CAPECITABINE. [Suspect]
     Active Substance: CAPECITABINE
     Indication: NEOPLASM MALIGNANT
     Route: 048
     Dates: start: 20181016, end: 20200602
  16. GLIPIZIDE. [Concomitant]
     Active Substance: GLIPIZIDE

REACTIONS (1)
  - Death [None]

NARRATIVE: CASE EVENT DATE: 20200602
